FAERS Safety Report 7828089-8 (Version None)
Quarter: 2011Q4

REPORT INFORMATION
  Report Type: 
  Country: None (occurrence: None)
  Receive Date: 20111020
  Receipt Date: 20111018
  Transmission Date: 20120403
  Serious: Yes (Other)
  Sender: FDA-Public Use
  Company Number: US-ABBOTT-11P-163-0864341-00

PATIENT
  Sex: Female
  Weight: 44.946 kg

DRUGS (4)
  1. HUMIRA [Suspect]
     Route: 058
     Dates: start: 20110916
  2. HUMIRA [Suspect]
     Route: 058
     Dates: start: 20110902, end: 20110902
  3. HUMIRA [Suspect]
     Indication: CROHN'S DISEASE
     Route: 058
     Dates: start: 20110819, end: 20110819
  4. CIPROFLOXACIN [Concomitant]
     Indication: CROHN'S DISEASE

REACTIONS (3)
  - CROHN'S DISEASE [None]
  - ASTHENIA [None]
  - HAEMOGLOBIN DECREASED [None]
